FAERS Safety Report 25776671 (Version 1)
Quarter: 2025Q3

REPORT INFORMATION
  Report Type: Spontaneous
  Country: US (occurrence: US)
  Receive Date: 20250909
  Receipt Date: 20250909
  Transmission Date: 20251021
  Serious: No
  Sender: DOMPE FARMACEUTICI
  Company Number: US-FARMAPROD-202409-3181

PATIENT
  Sex: Female

DRUGS (37)
  1. OXERVATE [Suspect]
     Active Substance: CENEGERMIN-BKBJ
     Indication: Neurotrophic keratopathy
     Route: 047
     Dates: start: 20201203
  2. OXERVATE [Suspect]
     Active Substance: CENEGERMIN-BKBJ
     Route: 047
     Dates: start: 20210325, end: 20210519
  3. OXERVATE [Suspect]
     Active Substance: CENEGERMIN-BKBJ
     Route: 047
     Dates: start: 20210521, end: 20210714
  4. OXERVATE [Suspect]
     Active Substance: CENEGERMIN-BKBJ
     Route: 047
     Dates: start: 20210729, end: 20210923
  5. OXERVATE [Suspect]
     Active Substance: CENEGERMIN-BKBJ
     Route: 047
     Dates: start: 20210927, end: 20211110
  6. OXERVATE [Suspect]
     Active Substance: CENEGERMIN-BKBJ
     Route: 047
     Dates: start: 20211110, end: 20220110
  7. OXERVATE [Suspect]
     Active Substance: CENEGERMIN-BKBJ
     Route: 047
     Dates: start: 20240823
  8. NUJU [Concomitant]
  9. TYLENOL EX-STR [Concomitant]
  10. POTASSIUM 595 [Concomitant]
  11. DUPIXENT [Concomitant]
     Active Substance: DUPILUMAB
  12. HYDROCORTISONE [Concomitant]
     Active Substance: HYDROCORTISONE
  13. TRIAMCINOLONE [Concomitant]
     Active Substance: TRIAMCINOLONE
  14. LOTEPREDNOL ETABONATE [Concomitant]
     Active Substance: LOTEPREDNOL ETABONATE
  15. UBIQUINOL [Concomitant]
     Active Substance: UBIQUINOL
  16. BIOTIN [Concomitant]
     Active Substance: BIOTIN
  17. FISH OIL [Concomitant]
     Active Substance: FISH OIL
  18. MAGNESIUM [Concomitant]
     Active Substance: MAGNESIUM
  19. VITAMIN D3 [Concomitant]
     Active Substance: CHOLECALCIFEROL
  20. CALCIUM\CHOLECALCIFEROL [Concomitant]
     Active Substance: CALCIUM\CHOLECALCIFEROL
  21. HYDROCORTISONE VALERATE [Concomitant]
     Active Substance: HYDROCORTISONE VALERATE
  22. ELIDEL [Concomitant]
     Active Substance: PIMECROLIMUS
  23. XYZAL [Concomitant]
     Active Substance: LEVOCETIRIZINE DIHYDROCHLORIDE
  24. SYSTANE (HYPROMELLOSE 2910 (4000 MPA.S)) [Concomitant]
     Active Substance: HYPROMELLOSE 2910 (4000 MPA.S)
  25. CYCLOBENZAPRINE HYDROCHLORIDE [Concomitant]
     Active Substance: CYCLOBENZAPRINE HYDROCHLORIDE
  26. ALLEGRA-D [Concomitant]
     Active Substance: FEXOFENADINE HYDROCHLORIDE\PSEUDOEPHEDRINE HYDROCHLORIDE
  27. PEPCID [Concomitant]
     Active Substance: FAMOTIDINE
  28. PRILOSEC OTC [Concomitant]
     Active Substance: OMEPRAZOLE MAGNESIUM
  29. NYSTATIN-TRIAMCINOLONE [Concomitant]
  30. NAFTIN [Concomitant]
     Active Substance: NAFTIFINE HYDROCHLORIDE
  31. PIMECROLIMUS [Concomitant]
     Active Substance: PIMECROLIMUS
  32. EUCRISA [Concomitant]
     Active Substance: CRISABOROLE
  33. LIDODERM [Concomitant]
     Active Substance: LIDOCAINE
  34. TOBRADEX [Concomitant]
     Active Substance: DEXAMETHASONE\TOBRAMYCIN
  35. LOTEMAX [Concomitant]
     Active Substance: LOTEPREDNOL ETABONATE
  36. CREON [Concomitant]
     Active Substance: PANCRELIPASE AMYLASE\PANCRELIPASE LIPASE\PANCRELIPASE PROTEASE
  37. XIIDRA [Concomitant]
     Active Substance: LIFITEGRAST

REACTIONS (2)
  - Ocular discomfort [Unknown]
  - Eye irritation [Unknown]
